FAERS Safety Report 8580097-8 (Version None)
Quarter: 2012Q3

REPORT INFORMATION
  Report Type: 
  Country: None (occurrence: None)
  Receive Date: 20120808
  Receipt Date: 20120803
  Transmission Date: 20120928
  Serious: Yes (Death, Hospitalization)
  Sender: FDA-Public Use
  Company Number: BR-US-EMD SERONO, INC.-7132427

PATIENT
  Sex: Female

DRUGS (3)
  1. REBIF [Suspect]
     Dates: start: 20120501, end: 20120605
  2. ANTIHYPERTENSIVE [Concomitant]
     Indication: HYPERTENSION
  3. REBIF [Suspect]
     Indication: RELAPSING-REMITTING MULTIPLE SCLEROSIS
     Dates: start: 20080615

REACTIONS (7)
  - BRONCHOPNEUMONIA [None]
  - DRUG INEFFECTIVE [None]
  - NOSOCOMIAL INFECTION [None]
  - RESPIRATORY ARREST [None]
  - HYPOKINESIA [None]
  - CARDIAC ARREST [None]
  - WOUND [None]
